FAERS Safety Report 15519655 (Version 1)
Quarter: 2018Q4

REPORT INFORMATION
  Report Type: Spontaneous
  Country: US (occurrence: US)
  Receive Date: 20181017
  Receipt Date: 20181017
  Transmission Date: 20190205
  Serious: Yes (Hospitalization)
  Sender: FDA-Public Use
  Company Number: US-MALLINCKRODT-T201804452

PATIENT
  Sex: Female
  Weight: 68 kg

DRUGS (1)
  1. H.P. ACTHAR [Suspect]
     Active Substance: CORTICOTROPIN
     Indication: POLYMYOSITIS
     Dosage: 80 UNITS/1 ML, TWO TIMES A WEEK
     Route: 058
     Dates: start: 201808

REACTIONS (2)
  - Drug ineffective [Unknown]
  - Choking [Unknown]

NARRATIVE: CASE EVENT DATE: 2018
